FAERS Safety Report 7190206-3 (Version None)
Quarter: 2010Q4

REPORT INFORMATION
  Report Type: 
  Country: None (occurrence: None)
  Receive Date: 20101210
  Receipt Date: 20101204
  Transmission Date: 20110411
  Serious: No
  Sender: FDA-Public Use
  Company Number: TPA2010A03867

PATIENT
  Age: 51 Year
  Sex: Male

DRUGS (2)
  1. ADENURIC (FEBUXOSTAT) [Suspect]
     Indication: GOUT
     Dosage: 80 MG (80 MG, 1 IN 1 D) ORAL
     Route: 048
     Dates: start: 20100409, end: 20100510
  2. COLCHICINE [Concomitant]

REACTIONS (2)
  - HEPATITIS TOXIC [None]
  - LIVER INJURY [None]
